FAERS Safety Report 8371342 (Version 2)
Quarter: 2013Q1

REPORT INFORMATION
  Report Type: Report from Study
  Country: US (occurrence: US)
  Receive Date: 20120129
  Receipt Date: 20130128
  Transmission Date: 20140127
  Serious: No
  Sender: FDA-Public Use
  Company Number: US-ABBOTT-11P-163-0881878-00

PATIENT
  Age: 32 Year
  Sex: Female

DRUGS (15)
  1. HUMIRA 40 MG/0.8 ML PEN [Suspect]
     Indication: CROHN^S DISEASE
     Dates: start: 201110
  2. PREDNISONE [Concomitant]
     Indication: CROHN^S DISEASE
  3. PROMETHAZINE [Concomitant]
     Indication: NAUSEA
     Dosage: EVERY 6 HOURS PRN
  4. DEXILANT [Concomitant]
     Indication: CROHN^S DISEASE
  5. DEXILANT [Concomitant]
     Indication: GASTROOESOPHAGEAL REFLUX DISEASE
  6. IMURAN [Concomitant]
     Indication: CROHN^S DISEASE
  7. HYDROXYZINE [Concomitant]
     Indication: PRODUCT USED FOR UNKNOWN INDICATION
     Dosage: PRN
  8. SERTRALINE [Concomitant]
     Indication: ANXIETY
  9. TRAMADOL [Concomitant]
     Indication: PAIN
     Dosage: PRN
  10. NORTRIPTYLINE [Concomitant]
     Indication: TENSION HEADACHE
  11. OXYBUTYNIN [Concomitant]
     Indication: POLLAKIURIA
     Dosage: PRN
  12. IRON [Concomitant]
     Indication: IRON DEFICIENCY
  13. IRON [Concomitant]
     Indication: ANAEMIA
  14. VITAMIN D [Concomitant]
     Indication: VITAMIN D DEFICIENCY
     Dosage: ONE A DAY
  15. CALCIUM [Concomitant]
     Indication: CALCIUM DEFICIENCY
     Dosage: TAKES ONE BID

REACTIONS (8)
  - Malaise [Not Recovered/Not Resolved]
  - Arthralgia [Not Recovered/Not Resolved]
  - Abdominal pain upper [Not Recovered/Not Resolved]
  - Pyrexia [Not Recovered/Not Resolved]
  - Chills [Not Recovered/Not Resolved]
  - Tooth abscess [Not Recovered/Not Resolved]
  - Gingival pain [Not Recovered/Not Resolved]
  - Clostridium difficile infection [Recovering/Resolving]
